FAERS Safety Report 23778387 (Version 1)
Quarter: 2024Q2

REPORT INFORMATION
  Report Type: Spontaneous
  Country: US (occurrence: None)
  Receive Date: 20240424
  Receipt Date: 20240424
  Transmission Date: 20240715
  Serious: No
  Sender: FDA-Public Use
  Company Number: None

PATIENT
  Age: 68 Year
  Sex: Female
  Weight: 94.05 kg

DRUGS (3)
  1. BENGAY ARTHRITIS PAIN RELIEVING [Suspect]
     Active Substance: MENTHOL\METHYL SALICYLATE
     Indication: Back pain
  2. BENGAY ARTHRITIS PAIN RELIEVING [Suspect]
     Active Substance: MENTHOL\METHYL SALICYLATE
     Indication: Arthralgia
  3. BUPROPION [Concomitant]
     Active Substance: BUPROPION

REACTIONS (3)
  - Dizziness [None]
  - Palpitations [None]
  - Dysgeusia [None]

NARRATIVE: CASE EVENT DATE: 20240424
